FAERS Safety Report 11966575 (Version 2)
Quarter: 2016Q1

REPORT INFORMATION
  Report Type: Spontaneous
  Country: US (occurrence: US)
  Receive Date: 20160127
  Receipt Date: 20160317
  Transmission Date: 20160526
  Serious: Yes (Other)
  Sender: FDA-Public Use
  Company Number: US-JNJFOC-20160116577

PATIENT
  Age: 55 Year
  Sex: Female
  Weight: 93.44 kg

DRUGS (7)
  1. 6-MP [Suspect]
     Active Substance: MERCAPTOPURINE
     Indication: COLITIS ULCERATIVE
     Route: 065
  2. 6-MP [Suspect]
     Active Substance: MERCAPTOPURINE
     Indication: COLITIS ULCERATIVE
     Route: 065
     Dates: start: 201404, end: 201408
  3. INFLIXIMAB, RECOMBINANT [Suspect]
     Active Substance: INFLIXIMAB
     Indication: PROCTITIS
     Dosage: RECEIVED 3 INFUSIONS
     Route: 042
     Dates: start: 201404, end: 201408
  4. PREDNISONE. [Concomitant]
     Active Substance: PREDNISONE
     Indication: COLITIS ULCERATIVE
     Dates: start: 201404, end: 201410
  5. 6-MP [Suspect]
     Active Substance: MERCAPTOPURINE
     Indication: PROCTITIS
     Route: 065
  6. INFLIXIMAB, RECOMBINANT [Suspect]
     Active Substance: INFLIXIMAB
     Indication: COLITIS ULCERATIVE
     Dosage: RECEIVED 3 INFUSIONS
     Route: 042
     Dates: start: 201404, end: 201408
  7. 6-MP [Suspect]
     Active Substance: MERCAPTOPURINE
     Indication: PROCTITIS
     Route: 065
     Dates: start: 201404, end: 201408

REACTIONS (2)
  - Herpes simplex colitis [Recovered/Resolved]
  - Cytomegalovirus colitis [Recovered/Resolved]

NARRATIVE: CASE EVENT DATE: 201402
